FAERS Safety Report 16631469 (Version 1)
Quarter: 2019Q3

REPORT INFORMATION
  Report Type: Spontaneous
  Country: CN (occurrence: CN)
  Receive Date: 20190725
  Receipt Date: 20190725
  Transmission Date: 20191004
  Serious: Yes (Other)
  Sender: FDA-Public Use
  Company Number: CN-JNJFOC-20190730139

PATIENT
  Age: 68 Year
  Sex: Male
  Weight: 45 kg

DRUGS (3)
  1. SPORANOX [Suspect]
     Active Substance: ITRACONAZOLE
     Indication: ANTI-INFECTIVE THERAPY
     Route: 065
     Dates: start: 201906, end: 20190620
  2. PIPERACILLIN AND TAZOBACTAM [Suspect]
     Active Substance: PIPERACILLIN SODIUM\TAZOBACTAM SODIUM
     Indication: ANTI-INFECTIVE THERAPY
     Route: 065
     Dates: start: 201906, end: 20190620
  3. MEROPENEM. [Suspect]
     Active Substance: MEROPENEM
     Indication: ANTI-INFECTIVE THERAPY
     Route: 065
     Dates: start: 201906, end: 20190620

REACTIONS (2)
  - Pyrexia [Unknown]
  - Lung infection [Unknown]

NARRATIVE: CASE EVENT DATE: 20190618
